FAERS Safety Report 8000557-8 (Version None)
Quarter: 2011Q4

REPORT INFORMATION
  Report Type: 
  Country: None (occurrence: None)
  Receive Date: 20111222
  Receipt Date: 20111209
  Transmission Date: 20120403
  Serious: Yes (Hospitalization)
  Sender: FDA-Public Use
  Company Number: US-RANBAXY-2011US-51205

PATIENT
  Age: 10 Year
  Sex: Male

DRUGS (9)
  1. LITHIUM CARBONATE [Suspect]
     Indication: MANIA
     Dosage: 150 MG QD
     Route: 048
  2. FAMOTIDINE [Concomitant]
     Indication: PRODUCT USED FOR UNKNOWN INDICATION
     Dosage: UNK,UNK
     Route: 065
  3. LITHIUM CARBONATE [Suspect]
     Dosage: 600 MG BID
     Route: 048
  4. RISPERIDONE [Suspect]
     Indication: PRODUCT USED FOR UNKNOWN INDICATION
     Route: 048
  5. RISPERIDONE [Suspect]
     Dosage: 4 MG, QD (AT BEDTIME)
     Route: 048
  6. CLONIDINE [Concomitant]
     Indication: PRODUCT USED FOR UNKNOWN INDICATION
     Dosage: UNK,UNK
     Route: 065
  7. MELATONIN [Concomitant]
     Indication: PRODUCT USED FOR UNKNOWN INDICATION
     Dosage: UNK,UNK
     Route: 065
  8. LITHIUM CARBONATE [Suspect]
     Dosage: 600MG IN THE MORNING AND 900MG AT NIGHT
     Route: 048
  9. LITHIUM CARBONATE [Suspect]
     Dosage: 900 MG BID
     Route: 048

REACTIONS (1)
  - DYSPHEMIA [None]
